FAERS Safety Report 9373332 (Version 2)
Quarter: 2013Q4

REPORT INFORMATION
  Report Type: Spontaneous
  Country: FR (occurrence: FR)
  Receive Date: 20130627
  Receipt Date: 20131119
  Transmission Date: 20140711
  Serious: Yes (Hospitalization)
  Sender: FDA-Public Use
  Company Number: FR-GLAXOSMITHKLINE-B0900628A

PATIENT
  Age: 82 Year
  Sex: Male

DRUGS (6)
  1. ARIXTRA [Suspect]
     Indication: THROMBOSIS PROPHYLAXIS
     Dosage: 2.5MG PER DAY
     Route: 058
     Dates: start: 20130403, end: 20130511
  2. KARDEGIC [Suspect]
     Indication: THROMBOSIS PROPHYLAXIS
     Dosage: 160MG PER DAY
     Route: 048
     Dates: start: 20130317, end: 20130514
  3. OFLOCET [Concomitant]
     Indication: URINARY TRACT INFECTION
     Dosage: 200MG PER DAY
     Route: 048
     Dates: start: 20130503, end: 20130531
  4. TAHOR [Concomitant]
     Dates: start: 20130317
  5. TAMSULOSINE [Concomitant]
     Dates: start: 20130317
  6. LOVENOX [Concomitant]
     Dates: start: 20130317, end: 20130403

REACTIONS (5)
  - Muscle haemorrhage [Recovered/Resolved]
  - Arthralgia [Unknown]
  - Back pain [Unknown]
  - Anaemia [Unknown]
  - Drug interaction [Unknown]
